FAERS Safety Report 23359140 (Version 1)
Quarter: 2024Q1

REPORT INFORMATION
  Report Type: Spontaneous
  Country: IT (occurrence: IT)
  Receive Date: 20240102
  Receipt Date: 20240102
  Transmission Date: 20240410
  Serious: Yes (Other)
  Sender: FDA-Public Use
  Company Number: IT-AMGEN-ITASP2023230574

PATIENT
  Age: 55 Year
  Sex: Female

DRUGS (4)
  1. FILGRASTIM [Suspect]
     Active Substance: FILGRASTIM
     Indication: Prophylaxis
     Dosage: 6 CYCLES
     Route: 065
     Dates: start: 201006
  2. FLUOROURACIL [Concomitant]
     Active Substance: FLUOROURACIL
     Dosage: 6 CYCLES
     Route: 065
     Dates: start: 201006
  3. EPIRUBICIN HYDROCHLORIDE [Concomitant]
     Active Substance: EPIRUBICIN HYDROCHLORIDE
     Dosage: 6 CYCLES
     Route: 065
     Dates: start: 201006
  4. CYCLOPHOSPHAMIDE [Concomitant]
     Active Substance: CYCLOPHOSPHAMIDE
     Dosage: 6 CYCLES
     Route: 065
     Dates: start: 201006

REACTIONS (5)
  - Breast cancer metastatic [Unknown]
  - Neuropathy peripheral [Unknown]
  - Neutropenia [Unknown]
  - Fatigue [Unknown]
  - Asthenia [Unknown]
